FAERS Safety Report 8833722 (Version 2)
Quarter: 2012Q4

REPORT INFORMATION
  Report Type: 
  Country: US (occurrence: US)
  Receive Date: 20121010
  Receipt Date: 20121018
  Transmission Date: 20130627
  Serious: No
  Sender: FDA-Public Use
  Company Number: US-BAYER-2012-102181

PATIENT
  Age: 75 Year
  Sex: Female
  Weight: 104 kg

DRUGS (5)
  1. ALEVE CAPLET/TABLET,MIDOL EXTENDED RELIEF CAPLET [Suspect]
     Route: 048
  2. ALEVE CAPLET/TABLET,MIDOL EXTENDED RELIEF CAPLET [Suspect]
     Dosage: 4 DF, UNK
     Route: 048
     Dates: start: 201209
  3. METFORMIN [Concomitant]
  4. AMLODIPINE [Concomitant]
  5. PRAVASTATIN [Concomitant]

REACTIONS (4)
  - Abdominal pain [Recovered/Resolved]
  - Urticaria [Recovered/Resolved]
  - No adverse event [None]
  - Pyrexia [Not Recovered/Not Resolved]
